FAERS Safety Report 8462312-4 (Version None)
Quarter: 2012Q2

REPORT INFORMATION
  Report Type: 
  Country: None (occurrence: None)
  Receive Date: 20120625
  Receipt Date: 20120617
  Transmission Date: 20120825
  Serious: Yes (Other)
  Sender: FDA-Public Use
  Company Number: US-ABBOTT-12P-163-0947275-00

PATIENT
  Sex: Male

DRUGS (9)
  1. VICODIN [Suspect]
     Indication: PRODUCT USED FOR UNKNOWN INDICATION
  2. ISOSORBIDE [Concomitant]
     Indication: CARDIAC DISORDER
  3. NITROSTAT [Concomitant]
     Indication: PRODUCT USED FOR UNKNOWN INDICATION
     Route: 060
  4. GABAPENTIN [Concomitant]
     Indication: CONVULSION
  5. NEXIUM [Concomitant]
     Indication: GASTROOESOPHAGEAL REFLUX DISEASE
  6. CLONAZEPAM [Concomitant]
     Indication: ANXIETY
  7. CARDIZEM [Concomitant]
     Indication: HEART RATE IRREGULAR
  8. CLONAZEPAM [Concomitant]
     Indication: PAIN
  9. OXYCODONE HCL [Concomitant]
     Indication: PAIN

REACTIONS (1)
  - CONVULSION [None]
